FAERS Safety Report 5543189-3 (Version None)
Quarter: 2007Q4

REPORT INFORMATION
  Report Type: 
  Country: None (occurrence: None)
  Receive Date: 20071210
  Receipt Date: 20070209
  Transmission Date: 20080405
  Serious: No
  Sender: FDA-Public Use
  Company Number: US-AMGEN-KDL210657

PATIENT
  Sex: Male

DRUGS (2)
  1. ENBREL [Suspect]
     Indication: PSORIATIC ARTHROPATHY
     Route: 058
     Dates: start: 20061223
  2. SULFASALAZINE [Concomitant]
     Dates: start: 20060401

REACTIONS (5)
  - ABDOMINAL PAIN UPPER [None]
  - CONTUSION [None]
  - DRUG INEFFECTIVE [None]
  - HEADACHE [None]
  - LETHARGY [None]
